FAERS Safety Report 9689188 (Version 1)
Quarter: 2013Q4

REPORT INFORMATION
  Report Type: Spontaneous
  Country: US (occurrence: US)
  Receive Date: 20131114
  Receipt Date: 20131114
  Transmission Date: 20140711
  Serious: Yes (Hospitalization)
  Sender: FDA-Public Use
  Company Number: US-TEVA-443716USA

PATIENT
  Sex: Female

DRUGS (1)
  1. FENTORA [Suspect]
     Route: 002
     Dates: start: 2009

REACTIONS (3)
  - Hypertension [Unknown]
  - Renal disorder [Unknown]
  - Infection [Unknown]
